FAERS Safety Report 7226210-6 (Version None)
Quarter: 2011Q1

REPORT INFORMATION
  Report Type: 
  Country: None (occurrence: None)
  Receive Date: 20110114
  Receipt Date: 20110103
  Transmission Date: 20110831
  Serious: Yes (Other)
  Sender: FDA-Public Use
  Company Number: PHHY2011DK00657

PATIENT
  Sex: Female

DRUGS (6)
  1. MULTIVITAMIN [Concomitant]
  2. ALENDRONATE SANDOZ [Suspect]
     Indication: OSTEOPOROSIS
     Dosage: 70 MG WEEKLY
     Route: 048
     Dates: start: 20101205
  3. CALCIUM [Concomitant]
  4. AMILORIDE HYDROCHLORIDE [Concomitant]
     Indication: BLOOD PRESSURE INCREASED
  5. LANSOPRAZOLE [Concomitant]
     Indication: HIATUS HERNIA
  6. GARLIC [Concomitant]

REACTIONS (5)
  - PHARYNGITIS [None]
  - COUGH [None]
  - PYREXIA [None]
  - CYSTITIS [None]
  - EPISTAXIS [None]
